FAERS Safety Report 8716813 (Version 3)
Quarter: 2012Q4

REPORT INFORMATION
  Report Type: Spontaneous
  Country: US (occurrence: None)
  Receive Date: 20120723
  Receipt Date: 20120925
  Transmission Date: 20130627
  Serious: Yes (Death)
  Sender: FDA-Public Use
  Company Number: CIO12012662

PATIENT
  Age: 18 Year
  Sex: Male
  Weight: 95.2 kg

DRUGS (3)
  1. VICKS NYQUIL COLD AND FLU NIGHTTIME RELIEF [Suspect]
     Indication: SINUS DISORDER
     Dosage: Unknown dose at bedtime, Oral
     Route: 048
     Dates: end: 20120120
  2. VICKS NYQUIL COLD AND FLU NIGHTTIME RELIEF [Suspect]
     Indication: INSOMNIA
     Dosage: Unknown dose at bedtime, Oral
     Route: 048
     Dates: end: 20120120
  3. DAYQUIL (DEXTROMETHORPHAN HYDROBROMIDE, GUAIFENESIN, PARACETAMOL, PSEUDOEPHEDRINE HYDROCHLORIDE) [Concomitant]

REACTIONS (31)
  - Blood ethanol increased [None]
  - Off label use [None]
  - Incorrect dose administered [None]
  - Road traffic accident [None]
  - Multiple injuries [None]
  - Cardiac arrest [None]
  - Respiratory arrest [None]
  - Subcutaneous emphysema [None]
  - Ventricular fibrillation [None]
  - Skull fracture [None]
  - Haemorrhage [None]
  - Decorticate posture [None]
  - Decerebrate posture [None]
  - Excoriation [None]
  - Laceration [None]
  - Laceration [None]
  - Contusion [None]
  - Abdominal distension [None]
  - Scrotal swelling [None]
  - Subarachnoid haemorrhage [None]
  - Arterial injury [None]
  - Brain oedema [None]
  - Pulmonary contusion [None]
  - Traumatic lung injury [None]
  - Rib fracture [None]
  - Traumatic liver injury [None]
  - Splenic rupture [None]
  - Renal injury [None]
  - Ulna fracture [None]
  - Ecchymosis [None]
  - Toxicologic test abnormal [None]
